FAERS Safety Report 13680853 (Version 3)
Quarter: 2017Q3

REPORT INFORMATION
  Report Type: Report from Study
  Country: DE (occurrence: DE)
  Receive Date: 20170623
  Receipt Date: 20170707
  Transmission Date: 20171127
  Serious: Yes (Hospitalization)
  Sender: FDA-Public Use
  Company Number: DE-ROCHE-1762249

PATIENT
  Sex: Female

DRUGS (25)
  1. DOXORUBICIN [Suspect]
     Active Substance: DOXORUBICIN
     Indication: B-CELL LYMPHOMA
     Dosage: 1 TIMES DAY FOR 1 DAY
     Route: 042
     Dates: start: 20160511
  2. VINCRISTIN [Suspect]
     Active Substance: VINCRISTINE
     Indication: B-CELL LYMPHOMA
     Dosage: 1 TIMES FOR 1 DAY
     Route: 042
     Dates: start: 20160511, end: 20160629
  3. CANDESARTAN. [Concomitant]
     Active Substance: CANDESARTAN
     Indication: HYPERTENSION
     Route: 048
  4. HYDROCHLOROTHIAZID [Concomitant]
     Active Substance: HYDROCHLOROTHIAZIDE
     Indication: HYPERTENSION
     Route: 048
  5. HYDROCHLOROTHIAZID [Concomitant]
     Active Substance: HYDROCHLOROTHIAZIDE
     Indication: DYSPNOEA
  6. DOMPERIDON [Concomitant]
     Active Substance: DOMPERIDONE
     Route: 065
  7. PEGFILGRASTIM [Suspect]
     Active Substance: PEGFILGRASTIM
     Indication: B-CELL LYMPHOMA
     Dosage: 1 TIMES DAY FOR 1 DAY
     Route: 058
     Dates: start: 20160514, end: 20160514
  8. CYCLOPHOSPHAMIDE. [Suspect]
     Active Substance: CYCLOPHOSPHAMIDE
     Indication: B-CELL LYMPHOMA
     Dosage: 1 TIMES DAY FOR 1 DAY?ON 10/MAY/2016, SHE RECEIVED LAST DOSE OF RITUXIMAB PRIOR TO SERIOUS ADVERSE E
     Route: 042
     Dates: start: 20160511
  9. METOPROLOL. [Concomitant]
     Active Substance: METOPROLOL
     Dosage: 1-0-1
     Route: 065
  10. OXETACAIN [Concomitant]
  11. RITUXIMAB. [Suspect]
     Active Substance: RITUXIMAB
     Indication: B-CELL LYMPHOMA
     Dosage: DATE OF LAST DOSE PRIOR TO SAE: 26/JUL/2016
     Route: 042
     Dates: start: 20160506
  12. PEGFILGRASTIM [Suspect]
     Active Substance: PEGFILGRASTIM
     Dosage: 1 TIMES DAY FOR 1 DAY
     Route: 058
     Dates: start: 20160729, end: 20160729
  13. CYCLOPHOSPHAMIDE. [Suspect]
     Active Substance: CYCLOPHOSPHAMIDE
     Dosage: FOR 1 DAY?LAST DOSE : 26/JUL/2016
     Route: 042
     Dates: start: 20160726, end: 20160726
  14. PREDNISONE. [Suspect]
     Active Substance: PREDNISONE
     Dosage: 1 TIMES A DAY FOR 5 DAY
     Route: 048
     Dates: start: 20160726, end: 20160730
  15. POTASSIUM CHLORIDE. [Concomitant]
     Active Substance: POTASSIUM CHLORIDE
     Route: 065
  16. PREDNISONE. [Suspect]
     Active Substance: PREDNISONE
     Indication: B-CELL LYMPHOMA
     Dosage: 1 TIMES A DAY FOR 5 DAY
     Route: 048
     Dates: start: 20160511
  17. PANTOPRAZOL NATRIUM [Concomitant]
     Active Substance: PANTOPRAZOLE SODIUM
     Indication: PROPHYLAXIS
     Route: 048
  18. METOPROLOL SUCCINATE. [Concomitant]
     Active Substance: METOPROLOL SUCCINATE
     Indication: HYPERTENSION
     Route: 048
  19. PHENPROCOUMON [Concomitant]
     Active Substance: PHENPROCOUMON
     Route: 048
  20. RITUXIMAB. [Suspect]
     Active Substance: RITUXIMAB
     Dosage: AS MAINETENANCE DOSE AND MOST RECENT DOSE ON 04/OCT/2016
     Route: 042
     Dates: start: 20161004
  21. RAMIPRIL. [Concomitant]
     Active Substance: RAMIPRIL
     Route: 048
  22. DABIGATRAN ETEXILATE [Concomitant]
     Active Substance: DABIGATRAN ETEXILATE
     Route: 065
  23. DOXORUBICIN [Suspect]
     Active Substance: DOXORUBICIN
     Dosage: 1 TIMES DAY FOR 1 DAY
     Route: 042
     Dates: start: 20160726, end: 20160726
  24. TORASEMID [Concomitant]
     Active Substance: TORSEMIDE
     Indication: DYSPNOEA
     Route: 048
  25. FUROSEMIDE. [Concomitant]
     Active Substance: FUROSEMIDE
     Route: 065

REACTIONS (6)
  - Cardiac failure [Recovered/Resolved]
  - Atrial fibrillation [Recovered/Resolved]
  - Acute myocardial infarction [Recovered/Resolved]
  - Atrial fibrillation [Recovered/Resolved]
  - Cerebral ischaemia [Recovered/Resolved]
  - Atrial fibrillation [Recovered/Resolved]

NARRATIVE: CASE EVENT DATE: 20160519
